FAERS Safety Report 21618282 (Version 1)
Quarter: 2022Q4

REPORT INFORMATION
  Report Type: Spontaneous
  Country: DE (occurrence: DE)
  Receive Date: 20221119
  Receipt Date: 20221119
  Transmission Date: 20230113
  Serious: Yes (Hospitalization)
  Sender: FDA-Public Use
  Company Number: None

PATIENT
  Age: 68 Year
  Sex: Male
  Weight: 69 kg

DRUGS (12)
  1. CARBOPLATIN [Suspect]
     Active Substance: CARBOPLATIN
     Indication: Product used for unknown indication
     Dosage: SCHEME
  2. ETOPOSIDE [Suspect]
     Active Substance: ETOPOSIDE
     Indication: Product used for unknown indication
     Dosage: SCHEME
  3. ZOLPIDEM [Concomitant]
     Active Substance: ZOLPIDEM TARTRATE
     Dosage: 10 MG, 0-0-0-1
  4. TORSEMIDE [Concomitant]
     Active Substance: TORSEMIDE
     Dosage: 5 MG, 1-0-0-0
  5. AMLODIPINE [Concomitant]
     Active Substance: AMLODIPINE BESYLATE
     Dosage: 10 MG, 1-0-0-0
  6. POTASSIUM CITRATE [Concomitant]
     Active Substance: POTASSIUM CITRATE
     Dosage: 1-0-1-0
  7. LACTULOSE [Concomitant]
     Active Substance: LACTULOSE
     Dosage: 25 ML, 1-1-1-0
  8. HYDROCHLOROTHIAZIDE [Concomitant]
     Active Substance: HYDROCHLOROTHIAZIDE
     Dosage: 12.5 MG, 1-0-0-0
  9. METOCLOPRAMIDE [Concomitant]
     Active Substance: METOCLOPRAMIDE
     Dosage: 10 MG, 1-0-1-1
  10. METAMIZOLE [Concomitant]
     Active Substance: METAMIZOLE
     Dosage: 500 MG, 1-0-1-1
  11. FENTANYL [Concomitant]
     Active Substance: FENTANYL
     Dosage: 12.0 MCG, SCHEME
  12. SPIRONOLACTONE [Concomitant]
     Active Substance: SPIRONOLACTONE
     Dosage: 25 MG, 1-0-0-0

REACTIONS (9)
  - Condition aggravated [Unknown]
  - Abdominal pain [Unknown]
  - Anaemia [Unknown]
  - Fatigue [Unknown]
  - Neutropenic sepsis [Unknown]
  - Nausea [Unknown]
  - General physical health deterioration [Unknown]
  - Systemic infection [Unknown]
  - Musculoskeletal pain [Unknown]
